FAERS Safety Report 4748541-1 (Version None)
Quarter: 2005Q3

REPORT INFORMATION
  Report Type: 
  Country: None (occurrence: None)
  Receive Date: 20050819
  Receipt Date: 20050809
  Transmission Date: 20060218
  Serious: Yes (Hospitalization)
  Sender: FDA-Public Use
  Company Number: DE-BOEHRINGER INGELHEIM PHARMACEUTICALS, INC.-2005-DE-03118GD

PATIENT
  Age: 70 Year
  Sex: Male

DRUGS (12)
  1. CLONIDINE [Suspect]
     Indication: BACK PAIN
     Route: 037
  2. MORPHINE [Suspect]
     Indication: BACK PAIN
     Route: 037
  3. MORPHINE [Suspect]
     Dosage: 40 - 60 MG
     Route: 008
  4. MORPHINE [Suspect]
     Dosage: UP TO 60 MG
     Route: 058
  5. BROMAZEPAM [Suspect]
     Route: 048
  6. DOXEPIN HCL [Suspect]
     Route: 048
  7. CARBAMAZEPINE [Suspect]
     Route: 048
  8. DISTRANEURIN [Suspect]
     Route: 048
  9. HALOPERIDOL [Suspect]
     Route: 048
  10. HYDROMORPHONE [Concomitant]
     Indication: BACK PAIN
     Route: 048
  11. METAMIZOLE [Concomitant]
     Indication: BACK PAIN
     Route: 048
  12. DICLOFENAC [Concomitant]
     Indication: BACK PAIN
     Route: 048

REACTIONS (7)
  - DEPRESSED LEVEL OF CONSCIOUSNESS [None]
  - DRUG INEFFECTIVE [None]
  - HYPOAESTHESIA [None]
  - MYOCLONUS [None]
  - PARESIS [None]
  - SPINAL CORD INJURY [None]
  - URINARY INCONTINENCE [None]
